FAERS Safety Report 16199977 (Version 2)
Quarter: 2019Q2

REPORT INFORMATION
  Report Type: Report from Study
  Country: None (occurrence: SE)
  Receive Date: 20190415
  Receipt Date: 20190423
  Transmission Date: 20190711
  Serious: Yes (Hospitalization)
  Sender: FDA-Public Use
  Company Number: SE-ABBVIE-19S-150-2742730-00

PATIENT
  Age: 72 Year
  Sex: Male
  Weight: 82 kg

DRUGS (2)
  1. DUODOPA [Suspect]
     Active Substance: CARBIDOPA\LEVODOPA
     Route: 050
     Dates: start: 20101022
  2. DUODOPA [Suspect]
     Active Substance: CARBIDOPA\LEVODOPA
     Indication: PARKINSON^S DISEASE
     Route: 050
     Dates: start: 20100906, end: 2010

REACTIONS (10)
  - Musculoskeletal stiffness [Unknown]
  - Pneumonia [Recovered/Resolved]
  - Breath sounds abnormal [Recovered/Resolved]
  - Influenza [Recovered/Resolved]
  - Reduced facial expression [Unknown]
  - Skin laceration [Unknown]
  - Fall [Unknown]
  - Cogwheel rigidity [Unknown]
  - Knee arthroplasty [Unknown]
  - Dementia [Unknown]

NARRATIVE: CASE EVENT DATE: 201902
